FAERS Safety Report 10260271 (Version 1)
Quarter: 2014Q2

REPORT INFORMATION
  Report Type: Spontaneous
  Country: US (occurrence: US)
  Receive Date: 20140625
  Receipt Date: 20140625
  Transmission Date: 20141212
  Serious: No
  Sender: FDA-Public Use
  Company Number: US-SA-2014SA050371

PATIENT
  Age: 77 Year
  Sex: Female

DRUGS (9)
  1. AUBAGIO [Suspect]
     Indication: MULTIPLE SCLEROSIS
     Route: 065
     Dates: end: 201312
  2. CARAFATE [Concomitant]
     Route: 048
  3. GABAPENTIN [Concomitant]
     Route: 048
  4. MULTIVITAMINS [Concomitant]
     Route: 048
  5. ATENOLOL [Concomitant]
     Route: 048
  6. HYDROCHLOROTHIAZIDE/TRIAMTERENE [Concomitant]
     Dosage: 75-50 MG DOSAGE
     Route: 048
  7. SIMVASTATIN [Concomitant]
     Route: 048
  8. ADVAIR DISKUS [Concomitant]
     Dosage: 250-50 MCG DOSAGE
     Route: 048
  9. SALBUTAMOL SULFATE [Concomitant]
     Dosage: 90 MCG BASE
     Route: 048

REACTIONS (3)
  - General physical health deterioration [Unknown]
  - Abdominal discomfort [Unknown]
  - Alopecia [Unknown]
